FAERS Safety Report 14567787 (Version 2)
Quarter: 2021Q2

REPORT INFORMATION
  Report Type: Spontaneous
  Country: DE (occurrence: DE)
  Receive Date: 20180223
  Receipt Date: 20210618
  Transmission Date: 20210716
  Serious: Yes (Hospitalization, Other)
  Sender: FDA-Public Use
  Company Number: DE-BRISTOL-MYERS SQUIBB COMPANY-BMS-2016-060041

PATIENT
  Age: 76 Year
  Sex: Male
  Weight: 93 kg

DRUGS (3)
  1. LITALIR [Suspect]
     Active Substance: HYDROXYUREA
     Dosage: 1000 MG, QD
     Route: 048
     Dates: end: 20160714
  2. LITALIR [Suspect]
     Active Substance: HYDROXYUREA
     Indication: THROMBOCYTOSIS
     Dosage: 1500 MG, UNK
     Route: 048
  3. LITALIR [Suspect]
     Active Substance: HYDROXYUREA
     Dosage: UNK
     Dates: start: 2014, end: 201608

REACTIONS (4)
  - Skin ulcer [Not Recovered/Not Resolved]
  - Thrombocytopenia [Unknown]
  - Pain [Recovered/Resolved]
  - Pseudomonas infection [Unknown]

NARRATIVE: CASE EVENT DATE: 2015
